FAERS Safety Report 23522199 (Version 1)
Quarter: 2024Q1

REPORT INFORMATION
  Report Type: Spontaneous
  Country: DE (occurrence: DE)
  Receive Date: 20240214
  Receipt Date: 20240214
  Transmission Date: 20240410
  Serious: Yes (Other)
  Sender: FDA-Public Use
  Company Number: DE-BAYER-2024A020340

PATIENT
  Sex: Female

DRUGS (1)
  1. MIRENA [Suspect]
     Active Substance: LEVONORGESTREL
     Dosage: 20?G/DAY
     Route: 015

REACTIONS (14)
  - Autoimmune thyroiditis [None]
  - Chest pain [None]
  - Dyspepsia [None]
  - Arthralgia [None]
  - Back pain [None]
  - Abdominal pain upper [None]
  - Muscle spasms [None]
  - Vaginal discharge [None]
  - Abnormal weight gain [None]
  - Thyroid function test abnormal [None]
  - Alopecia [None]
  - Skin discolouration [None]
  - Overweight [None]
  - Genital haemorrhage [None]
